FAERS Safety Report 7312599-6 (Version None)
Quarter: 2011Q1

REPORT INFORMATION
  Report Type: 
  Country: None (occurrence: None)
  Receive Date: 20110224
  Receipt Date: 20110210
  Transmission Date: 20110831
  Serious: Yes (Death)
  Sender: FDA-Public Use
  Company Number: US-CELGENEUS-163-21880-11010597

PATIENT
  Sex: Female

DRUGS (8)
  1. POTASSIUM CHLORIDE [Concomitant]
     Route: 048
     Dates: start: 20100901, end: 20100101
  2. REVLIMID [Suspect]
     Indication: MULTIPLE MYELOMA
     Route: 048
     Dates: start: 20101001, end: 20101201
  3. LASIX [Concomitant]
     Route: 048
     Dates: start: 20100901, end: 20100101
  4. KAPIDEX [Concomitant]
     Route: 048
     Dates: start: 20100901, end: 20100101
  5. PREMPRO [Concomitant]
     Route: 048
     Dates: start: 19900101
  6. REVLIMID [Suspect]
     Indication: AMYLOIDOSIS
  7. AMIODARONE [Concomitant]
     Route: 048
     Dates: start: 20100101, end: 20100101
  8. CARAFATE [Concomitant]
     Route: 048
     Dates: start: 20100901, end: 20100101

REACTIONS (3)
  - PNEUMONIA [None]
  - GASTROINTESTINAL HAEMORRHAGE [None]
  - CARDIAC FAILURE CONGESTIVE [None]
